FAERS Safety Report 22651839 (Version 1)
Quarter: 2023Q2

REPORT INFORMATION
  Report Type: Spontaneous
  Country: US (occurrence: US)
  Receive Date: 20230628
  Receipt Date: 20230628
  Transmission Date: 20230721
  Serious: No
  Sender: FDA-Public Use
  Company Number: US-CTI BIOPHARMA-2023US03670

PATIENT

DRUGS (2)
  1. VONJO [Suspect]
     Active Substance: PACRITINIB
     Indication: Myelofibrosis
     Dosage: 200 MG, QD, (NIGHT)
     Route: 048
     Dates: start: 20230108
  2. VONJO [Suspect]
     Active Substance: PACRITINIB
     Dosage: 100 MG, QD (MORNING)
     Route: 048
     Dates: start: 20230108

REACTIONS (1)
  - Nausea [Unknown]

NARRATIVE: CASE EVENT DATE: 20230418
